FAERS Safety Report 15094452 (Version 1)
Quarter: 2018Q2

REPORT INFORMATION
  Report Type: Spontaneous
  Country: FR (occurrence: FR)
  Receive Date: 20180630
  Receipt Date: 20180630
  Transmission Date: 20180711
  Serious: Yes (Hospitalization)
  Sender: FDA-Public Use
  Company Number: FR-ALSI-201800406

PATIENT
  Age: 17 Year
  Sex: Female
  Weight: 50 kg

DRUGS (2)
  1. OXYGEN. [Suspect]
     Active Substance: OXYGEN
     Indication: PAIN
     Route: 045
     Dates: start: 20180107, end: 20180220
  2. NITROUS OXIDE. [Suspect]
     Active Substance: NITROUS OXIDE
     Route: 045
     Dates: start: 20180107, end: 20180220

REACTIONS (3)
  - Paraesthesia [Recovered/Resolved]
  - Hypovitaminosis [Recovered/Resolved]
  - Tremor [Recovered/Resolved]

NARRATIVE: CASE EVENT DATE: 20180208
